FAERS Safety Report 16844556 (Version 1)
Quarter: 2019Q3

REPORT INFORMATION
  Report Type: Spontaneous
  Country: TW (occurrence: TW)
  Receive Date: 20190924
  Receipt Date: 20190924
  Transmission Date: 20191005
  Serious: Yes (Other)
  Sender: FDA-Public Use
  Company Number: TW-HQ SPECIALTY-TW-2019INT000239

PATIENT

DRUGS (3)
  1. VINORELBINE [Suspect]
     Active Substance: VINORELBINE TARTRATE
     Indication: NON-SMALL CELL LUNG CANCER STAGE III
     Dosage: 50 MG/M2, ON DAY 1, 8 AND 15
     Route: 048
  2. RADIOTHERAPY [Suspect]
     Active Substance: RADIATION THERAPY
     Indication: NON-SMALL CELL LUNG CANCER STAGE III
     Dosage: 66?70 GY, DELIVERED FROM DAY 1 IN DAILY FRACTIONS OF 2 GY FOR 6.5?7 CONSECUTIVE WEEKS
     Route: 065
  3. CISPLATIN. [Suspect]
     Active Substance: CISPLATIN
     Indication: NON-SMALL CELL LUNG CANCER STAGE III
     Dosage: 60 MG/M2, ON DAY 1, 2 CYCLES
     Route: 042

REACTIONS (2)
  - Febrile neutropenia [Unknown]
  - Toxicity to various agents [Unknown]
